FAERS Safety Report 25116682 (Version 1)
Quarter: 2025Q1

REPORT INFORMATION
  Report Type: Report from Study
  Country: US (occurrence: US)
  Receive Date: 20250325
  Receipt Date: 20250325
  Transmission Date: 20250409
  Serious: No
  Sender: AVERITAS
  Company Number: US-GRUNENTHAL-2025-104259

PATIENT
  Age: 65 Year
  Sex: Female

DRUGS (1)
  1. QUTENZA [Suspect]
     Active Substance: CAPSAICIN
     Indication: Diabetic neuropathy
     Route: 061
     Dates: start: 20250311, end: 20250311

REACTIONS (2)
  - Application site pain [Unknown]
  - Application site pain [Unknown]

NARRATIVE: CASE EVENT DATE: 20250301
